FAERS Safety Report 5236180-8 (Version None)
Quarter: 2007Q1

REPORT INFORMATION
  Report Type: 
  Country: None (occurrence: None)
  Receive Date: 20061208
  Receipt Date: 20060123
  Transmission Date: 20070707
  Serious: Yes (Other)
  Sender: FDA-Public Use
  Company Number: 2006UW01153

PATIENT
  Age: 42 Year
  Sex: Female
  Weight: 66.224 kg

DRUGS (2)
  1. CRESTOR [Suspect]
     Indication: BLOOD CHOLESTEROL INCREASED
     Dosage: 10 MG PO
     Route: 048
     Dates: start: 20041001
  2. MOTRIN [Concomitant]

REACTIONS (2)
  - ALOPECIA [None]
  - NEPHROLITHIASIS [None]
